FAERS Safety Report 9100684 (Version 1)
Quarter: 2013Q1

REPORT INFORMATION
  Report Type: Report from Study
  Country: US (occurrence: US)
  Receive Date: 20130215
  Receipt Date: 20130215
  Transmission Date: 20140127
  Serious: Yes (Other)
  Sender: FDA-Public Use
  Company Number: US-ROCHE-1189102

PATIENT
  Age: 10 Year
  Sex: 0
  Weight: 60.1 kg

DRUGS (3)
  1. NUTROPIN AQ [Suspect]
     Indication: PRADER-WILLI SYNDROME
     Route: 058
     Dates: start: 200806, end: 201206
  2. NUTROPIN AQ [Suspect]
     Dosage: NUTROPIN AQ
     Route: 058
     Dates: start: 201206, end: 201212
  3. NUTROPIN AQ [Suspect]
     Route: 058
     Dates: start: 201301, end: 20130201

REACTIONS (2)
  - Headache [Recovered/Resolved]
  - Tongue disorder [Recovered/Resolved]
